FAERS Safety Report 5373234-X (Version None)
Quarter: 2007Q2

REPORT INFORMATION
  Report Type: 
  Country: None (occurrence: None)
  Receive Date: 20070628
  Receipt Date: 20070625
  Transmission Date: 20071010
  Serious: Yes (Other)
  Sender: FDA-Public Use
  Company Number: PHNU2007DE02279

PATIENT
  Age: 76 Year
  Sex: Male

DRUGS (2)
  1. LAMISIL [Suspect]
     Route: 048
     Dates: start: 20070601
  2. LAMISIL [Suspect]
     Route: 048
     Dates: start: 20050101

REACTIONS (1)
  - MYOCARDIAL INFARCTION [None]
